FAERS Safety Report 6190843-9 (Version None)
Quarter: 2009Q2

REPORT INFORMATION
  Report Type: 
  Country: None (occurrence: None)
  Receive Date: 20090514
  Receipt Date: 20090508
  Transmission Date: 20091009
  Serious: Yes (Hospitalization)
  Sender: FDA-Public Use
  Company Number: PHHO2007BE02055

PATIENT
  Sex: Male
  Weight: 73 kg

DRUGS (6)
  1. MYCOPHENOLIC ACID [Suspect]
     Indication: RENAL TRANSPLANT
     Dosage: 1440 MG / DAY
     Route: 048
     Dates: start: 20060928, end: 20061214
  2. MYCOPHENOLIC ACID [Suspect]
     Dosage: REDUCED DOSE
     Route: 048
  3. CYCLOSPORINE [Suspect]
     Indication: RENAL TRANSPLANT
     Dosage: NOT REPORTED
     Route: 048
     Dates: start: 20060928
  4. MEDROL [Concomitant]
  5. INSULIN [Concomitant]
  6. ACENOCOUMAROL [Concomitant]

REACTIONS (7)
  - BACILLUS INFECTION [None]
  - BRONCHIECTASIS [None]
  - FEBRILE NEUTROPENIA [None]
  - LEUKOPENIA [None]
  - LUNG DISORDER [None]
  - PSEUDOMONAS INFECTION [None]
  - STAPHYLOCOCCAL INFECTION [None]
